FAERS Safety Report 6591005-3 (Version None)
Quarter: 2010Q1

REPORT INFORMATION
  Report Type: 
  Country: None (occurrence: None)
  Receive Date: 20100219
  Receipt Date: 20100210
  Transmission Date: 20100710
  Serious: Yes (Hospitalization)
  Sender: FDA-Public Use
  Company Number: TR-ELI_LILLY_AND_COMPANY-TR201002003404

PATIENT
  Age: 56 Year
  Sex: Male

DRUGS (3)
  1. HUMALOG MIX 75/25 [Suspect]
     Indication: DIABETES MELLITUS
     Dosage: 32 IU, EACH MORNING
     Route: 058
     Dates: start: 20091201
  2. HUMALOG MIX 75/25 [Suspect]
     Dosage: 22 IU, EACH EVENING
     Route: 058
     Dates: start: 20091201
  3. GLIFOR [Concomitant]
     Indication: DIABETES MELLITUS
     Dosage: UNK UNK, 2/D
     Route: 048

REACTIONS (1)
  - BLOOD GLUCOSE INCREASED [None]
